FAERS Safety Report 7240816-X (Version None)
Quarter: 2011Q1

REPORT INFORMATION
  Report Type: 
  Country: None (occurrence: None)
  Receive Date: 20110120
  Receipt Date: 20110120
  Transmission Date: 20110831
  Serious: Yes (Other)
  Sender: FDA-Public Use
  Company Number: None

PATIENT
  Age: 73 Year
  Sex: Female
  Weight: 58.0604 kg

DRUGS (1)
  1. BENADRYL [Suspect]
     Indication: URTICARIA
     Dosage: 1 CAPSULE ONCE PO
     Route: 048
     Dates: start: 20110108, end: 20110108

REACTIONS (1)
  - RASH ERYTHEMATOUS [None]
